FAERS Safety Report 9555679 (Version 1)
Quarter: 2013Q3

REPORT INFORMATION
  Report Type: Spontaneous
  Country: US (occurrence: None)
  Receive Date: 20130925
  Receipt Date: 20130925
  Transmission Date: 20140515
  Serious: Yes (Hospitalization, Disabling)
  Sender: FDA-Public Use
  Company Number: None

PATIENT
  Age: 31 Year
  Sex: Male
  Weight: 99.79 kg

DRUGS (2)
  1. LEVAQUIN [Suspect]
     Indication: ATYPICAL PNEUMONIA
     Dosage: 10 PILLS
     Route: 048
     Dates: start: 20090413, end: 20090414
  2. LEVAQUIN [Suspect]
     Indication: PNEUMONIA
     Dosage: 10 PILLS
     Route: 048
     Dates: start: 20090413, end: 20090414

REACTIONS (10)
  - Fear [None]
  - Confusional state [None]
  - Headache [None]
  - Hyperhidrosis [None]
  - Dyspnoea [None]
  - Disorientation [None]
  - Mental disorder [None]
  - Feeling hot [None]
  - Panic attack [None]
  - Asthenia [None]
